FAERS Safety Report 23518860 (Version 4)
Quarter: 2024Q2

REPORT INFORMATION
  Report Type: Spontaneous
  Country: CA (occurrence: CA)
  Receive Date: 20240213
  Receipt Date: 20240423
  Transmission Date: 20240715
  Serious: Yes (Hospitalization)
  Sender: FDA-Public Use
  Company Number: CA-PFIZER INC-202400016063

PATIENT
  Age: 23 Year
  Sex: Male

DRUGS (1)
  1. ABRILADA [Suspect]
     Active Substance: ADALIMUMAB-AFZB
     Indication: Crohn^s disease
     Dosage: 40 MG EVERY 2 WEEKS
     Route: 058
     Dates: start: 20220513

REACTIONS (3)
  - Condition aggravated [Unknown]
  - Abscess [Unknown]
  - Off label use [Unknown]
